FAERS Safety Report 9336785 (Version 1)
Quarter: 2013Q2

REPORT INFORMATION
  Report Type: Spontaneous
  Country: GB (occurrence: GB)
  Receive Date: 20130607
  Receipt Date: 20130607
  Transmission Date: 20140414
  Serious: Yes (Other)
  Sender: FDA-Public Use
  Company Number: PHHY2013GB056859

PATIENT
  Age: 20 Month
  Sex: Male

DRUGS (1)
  1. CO-AMOXICLAV [Suspect]
     Dosage: UNK UKN, UNK
     Dates: start: 20130531

REACTIONS (3)
  - Pyrexia [Not Recovered/Not Resolved]
  - Vomiting [Not Recovered/Not Resolved]
  - Exposure during breast feeding [Not Recovered/Not Resolved]
